FAERS Safety Report 11652515 (Version 3)
Quarter: 2015Q4

REPORT INFORMATION
  Report Type: Spontaneous
  Country: JP (occurrence: JP)
  Receive Date: 20151022
  Receipt Date: 20151104
  Transmission Date: 20160304
  Serious: Yes (Other)
  Sender: FDA-Public Use
  Company Number: JP-GLAXOSMITHKLINE-JP2015GSK149955

PATIENT
  Sex: Female

DRUGS (6)
  1. LIMAPROST ALFADEX [Concomitant]
     Active Substance: LIMAPROST
     Dosage: UNK
     Dates: start: 201507
  2. CALCITAMIN [Concomitant]
     Active Substance: MINERALS\VITAMINS
  3. OMEGA-3-ACID ETHYL ESTERS. [Suspect]
     Active Substance: OMEGA-3-ACID ETHYL ESTERS
     Indication: HYPERLIPIDAEMIA
     Dosage: 2 G, UNK
     Route: 048
     Dates: start: 201403
  4. NATRIX [Concomitant]
     Active Substance: INDAPAMIDE
  5. CANDESARTAN [Concomitant]
     Active Substance: CANDESARTAN
  6. NIFESLOW [Concomitant]

REACTIONS (1)
  - Rhabdomyolysis [Not Recovered/Not Resolved]

NARRATIVE: CASE EVENT DATE: 20151006
